FAERS Safety Report 10090341 (Version 1)
Quarter: 2014Q2

REPORT INFORMATION
  Report Type: Spontaneous
  Country: DE (occurrence: DE)
  Receive Date: 20140421
  Receipt Date: 20140421
  Transmission Date: 20141212
  Serious: No
  Sender: FDA-Public Use
  Company Number: DE-UCBSA-118388

PATIENT
  Sex: 0

DRUGS (1)
  1. KEPPRA [Suspect]

REACTIONS (1)
  - Thrombocytopenia [Unknown]
